FAERS Safety Report 5386934-2 (Version None)
Quarter: 2007Q3

REPORT INFORMATION
  Report Type: 
  Country: None (occurrence: None)
  Receive Date: 20070713
  Receipt Date: 20070702
  Transmission Date: 20080115
  Serious: Yes (Hospitalization, Other)
  Sender: FDA-Public Use
  Company Number: US-PFIZER INC-2007054683

PATIENT
  Sex: Female
  Weight: 94.8 kg

DRUGS (8)
  1. SOLU-MEDROL [Suspect]
     Indication: MULTIPLE SCLEROSIS
     Route: 042
  2. REBIF [Suspect]
     Indication: MULTIPLE SCLEROSIS
     Route: 058
     Dates: start: 20040501
  3. IBUPROFEN [Concomitant]
     Indication: PREMEDICATION
     Route: 048
  4. ORTHO TRI-CYCLEN [Concomitant]
     Indication: CONTRACEPTION
     Route: 048
  5. ZOLOFT [Concomitant]
     Indication: ANXIETY
     Route: 048
  6. ZOLOFT [Concomitant]
     Indication: DEPRESSION
  7. BENADRYL [Concomitant]
     Indication: SLEEP DISORDER
     Route: 048
  8. BENADRYL [Concomitant]
     Indication: HYPERSENSITIVITY

REACTIONS (6)
  - BLOOD PRESSURE INCREASED [None]
  - ELECTROCARDIOGRAM QT PROLONGED [None]
  - HEADACHE [None]
  - INSOMNIA [None]
  - MYOCARDIAL INFARCTION [None]
  - RESTLESSNESS [None]
